FAERS Safety Report 25939383 (Version 2)
Quarter: 2025Q4

REPORT INFORMATION
  Report Type: Report from Study
  Country: US (occurrence: US)
  Receive Date: 20251020
  Receipt Date: 20251107
  Transmission Date: 20260118
  Serious: Yes (Life-Threatening, Hospitalization)
  Sender: TEVA
  Company Number: US-TEVA-VS-3382051

PATIENT
  Age: 63 Year
  Sex: Female

DRUGS (2)
  1. LEVETIRACETAM [Suspect]
     Active Substance: LEVETIRACETAM
     Indication: Seizure
     Dosage: STARTED RECEIVING TREATMENT FOR 7 DAYS
     Route: 065
  2. APIXABAN [Suspect]
     Active Substance: APIXABAN
     Indication: Atrial fibrillation
     Route: 065

REACTIONS (5)
  - Drug ineffective [Unknown]
  - Brain compression [Recovered/Resolved]
  - Subdural haematoma [Recovered/Resolved]
  - Cerebral mass effect [Recovered/Resolved]
  - Seizure [Recovered/Resolved]
